FAERS Safety Report 6449795-6 (Version None)
Quarter: 2009Q4

REPORT INFORMATION
  Report Type: 
  Country: None (occurrence: None)
  Receive Date: 20091120
  Receipt Date: 20091113
  Transmission Date: 20100525
  Serious: Yes (Hospitalization, Other)
  Sender: FDA-Public Use
  Company Number: US-GENENTECH-292338

PATIENT
  Sex: Male
  Weight: 66.7 kg

DRUGS (16)
  1. RITUXAN [Suspect]
     Indication: HEART TRANSPLANT REJECTION
     Dosage: 650 MG, UNK
     Route: 042
     Dates: start: 20091008
  2. INSULIN [Concomitant]
     Indication: DIABETES MELLITUS
  3. IMMUNE GLOBULIN INTRAVENOUS (HUMAN) [Concomitant]
     Indication: DRUG USE FOR UNKNOWN INDICATION
  4. BENADRYL [Concomitant]
     Indication: PREMEDICATION
  5. TYLENOL (CAPLET) [Concomitant]
     Indication: PREMEDICATION
  6. PREDNISONE [Concomitant]
     Indication: HEART TRANSPLANT REJECTION
  7. AMLODIPINE [Concomitant]
     Indication: HYPERTENSION
  8. CALCIUM CARBONATE [Concomitant]
     Indication: BONE DENSITY DECREASED
  9. CARVEDILOL [Concomitant]
     Indication: CARDIAC FAILURE
  10. FUROSEMIDE [Concomitant]
     Indication: CARDIAC FAILURE
  11. METHOTREXATE [Concomitant]
     Indication: HEART TRANSPLANT REJECTION
  12. SODIUM BICARBONATE IN PLASTIC CONTAINER [Concomitant]
     Indication: ACIDOSIS
  13. SPIRONOLACTONE [Concomitant]
     Indication: CARDIAC FAILURE
  14. TRIMETHOPRIM [Concomitant]
     Indication: PROPHYLAXIS
  15. TACROLIMUS [Concomitant]
     Indication: HEART TRANSPLANT REJECTION
  16. VALGANCICLOVIR HCL [Concomitant]
     Indication: PROPHYLAXIS

REACTIONS (2)
  - CARDIAC ARREST [None]
  - INFUSION RELATED REACTION [None]
